FAERS Safety Report 15959525 (Version 1)
Quarter: 2019Q1

REPORT INFORMATION
  Report Type: Spontaneous
  Country: GB (occurrence: GB)
  Receive Date: 20190214
  Receipt Date: 20190214
  Transmission Date: 20190417
  Serious: Yes (Other)
  Sender: FDA-Public Use
  Company Number: GB-ACCORD-106260

PATIENT
  Age: 84 Year
  Sex: Male

DRUGS (19)
  1. FELODIPINE. [Concomitant]
     Active Substance: FELODIPINE
  2. ATORVASTATIN/ATORVASTATIN CALCIUM [Suspect]
     Active Substance: ATORVASTATIN CALCIUM
     Indication: PRODUCT USED FOR UNKNOWN INDICATION
     Route: 048
  3. CLOPIDOGREL [Concomitant]
     Active Substance: CLOPIDOGREL BISULFATE
  4. DIGOXIN. [Concomitant]
     Active Substance: DIGOXIN
  5. ISOSORBIDE. [Concomitant]
     Active Substance: ISOSORBIDE
  6. BUMETANIDE. [Concomitant]
     Active Substance: BUMETANIDE
  7. PREDNISOLONE. [Concomitant]
     Active Substance: PREDNISOLONE
  8. NITROFURANTOIN/NITROFURANTOIN SODIUM [Concomitant]
  9. PARACETAMOL [Concomitant]
     Active Substance: ACETAMINOPHEN
  10. DAPTOMYCIN. [Concomitant]
     Active Substance: DAPTOMYCIN
  11. CASSIA [Concomitant]
  12. LAXIDO [Concomitant]
     Active Substance: POLYETHYLENE GLYCOL 3350\POTASSIUM CHLORIDE\SODIUM BICARBONATE\SODIUM CHLORIDE
  13. LACTULOSE. [Concomitant]
     Active Substance: LACTULOSE
  14. BISOPROLOL [Concomitant]
     Active Substance: BISOPROLOL
  15. CODEINE [Concomitant]
     Active Substance: CODEINE
  16. LANSOPRAZOLE. [Concomitant]
     Active Substance: LANSOPRAZOLE
  17. GLYCERYL TRINITRATE [Concomitant]
     Active Substance: NITROGLYCERIN
  18. SANDO K [Concomitant]
  19. RIFAMPICIN [Concomitant]
     Active Substance: RIFAMPIN

REACTIONS (1)
  - Tendonitis [Not Recovered/Not Resolved]

NARRATIVE: CASE EVENT DATE: 20180604
